FAERS Safety Report 13106714 (Version 3)
Quarter: 2017Q2

REPORT INFORMATION
  Report Type: Report from Study
  Country: BR (occurrence: BR)
  Receive Date: 20170111
  Receipt Date: 20170420
  Transmission Date: 20170830
  Serious: Yes (Other)
  Sender: FDA-Public Use
  Company Number: BR-JNJFOC-20161120444

PATIENT
  Age: 74 Year
  Sex: Female
  Weight: 60 kg

DRUGS (8)
  1. SOFOSBUVIR [Concomitant]
     Active Substance: SOFOSBUVIR
     Route: 065
  2. STELARA [Suspect]
     Active Substance: USTEKINUMAB
     Indication: PSORIASIS
     Dosage: SYRINGE
     Route: 058
  3. DEXAMETHASONE. [Concomitant]
     Active Substance: DEXAMETHASONE
     Route: 065
  4. STELARA [Suspect]
     Active Substance: USTEKINUMAB
     Indication: PSORIASIS
     Route: 058
     Dates: start: 20140213
  5. ELIDEL [Concomitant]
     Active Substance: PIMECROLIMUS
     Route: 065
  6. BETAMETHASONE. [Concomitant]
     Active Substance: BETAMETHASONE
     Route: 065
  7. SIMEPREVIR SODIUM [Concomitant]
     Active Substance: SIMEPREVIR SODIUM
     Route: 065
  8. CLOB-X [Concomitant]

REACTIONS (8)
  - Gastric cancer [Unknown]
  - Stress [Unknown]
  - Off label use [Unknown]
  - Drug ineffective [Unknown]
  - Cardiac disorder [Unknown]
  - Cardiac assistance device user [Unknown]
  - Product use issue [Unknown]
  - Psoriasis [Not Recovered/Not Resolved]

NARRATIVE: CASE EVENT DATE: 20140213
